FAERS Safety Report 21680456 (Version 4)
Quarter: 2023Q2

REPORT INFORMATION
  Report Type: Report from Study
  Country: US (occurrence: US)
  Receive Date: 20221205
  Receipt Date: 20230410
  Transmission Date: 20230722
  Serious: Yes (Hospitalization, Other)
  Sender: FDA-Public Use
  Company Number: US-ABBVIE-4223232

PATIENT
  Sex: Male

DRUGS (4)
  1. IMBRUVICA [Suspect]
     Active Substance: IBRUTINIB
     Indication: Chronic lymphocytic leukaemia
     Dosage: TIME INTERVAL: 0.33333333 DAYS: FORM STRENGTH: 140 MG, LAST ADMIN DATE: 2019
     Route: 048
     Dates: start: 20191031
  2. IMBRUVICA [Suspect]
     Active Substance: IBRUTINIB
     Indication: Chronic lymphocytic leukaemia
     Dosage: FORM STRENGTH: 140 MG, LAST ADMIN DATE: OCT 2019
     Route: 048
     Dates: start: 201910
  3. IMBRUVICA [Suspect]
     Active Substance: IBRUTINIB
     Indication: Chronic lymphocytic leukaemia
     Dosage: TIME INTERVAL: 0.33333333 DAYS: FORM STRENGTH: 140 MG
     Route: 048
     Dates: start: 20210117
  4. IMBRUVICA [Suspect]
     Active Substance: IBRUTINIB
     Indication: Chronic lymphocytic leukaemia
     Dosage: TIME INTERVAL: 0.33333333 DAYS: FORM STRENGTH: 140 MG,
     Route: 048
     Dates: start: 20191101

REACTIONS (10)
  - Scrotal swelling [Not Recovered/Not Resolved]
  - Depression [Unknown]
  - Food allergy [Unknown]
  - Penis disorder [Unknown]
  - Anaphylactic reaction [Unknown]
  - Purpura [Unknown]
  - Micturition disorder [Unknown]
  - Penile swelling [Not Recovered/Not Resolved]
  - Papilloma viral infection [Unknown]
  - Unevaluable event [Recovering/Resolving]
